FAERS Safety Report 5971393-9 (Version None)
Quarter: 2008Q4

REPORT INFORMATION
  Report Type: 
  Country: None (occurrence: None)
  Receive Date: 20081130
  Receipt Date: 20081124
  Transmission Date: 20090506
  Serious: Yes (Other)
  Sender: FDA-Public Use
  Company Number: US-PFIZER INC-2008099476

PATIENT
  Sex: Female
  Weight: 77.1 kg

DRUGS (5)
  1. ALPRAZOLAM [Suspect]
     Indication: ANXIETY
     Dates: start: 20080315
  2. LEXAPRO [Concomitant]
  3. SEROQUEL [Concomitant]
  4. WELLBUTRIN [Concomitant]
  5. AMBIEN [Concomitant]

REACTIONS (2)
  - INTENTIONAL SELF-INJURY [None]
  - SUICIDE ATTEMPT [None]
